FAERS Safety Report 20719270 (Version 1)
Quarter: 2022Q2

REPORT INFORMATION
  Report Type: Spontaneous
  Country: US (occurrence: None)
  Receive Date: 20220415
  Receipt Date: 20220415
  Transmission Date: 20220720
  Serious: No
  Sender: FDA-Public Use
  Company Number: None

PATIENT
  Age: 89 Year
  Sex: Male
  Weight: 93.49 kg

DRUGS (18)
  1. TAFINLAR [Suspect]
     Active Substance: DABRAFENIB MESYLATE
     Indication: Malignant melanoma
     Dosage: 75MG TWICE A DAY ORAL?
     Route: 048
     Dates: start: 202111, end: 202204
  2. MEKINIST [Suspect]
     Active Substance: TRAMETINIB DIMETHYL SULFOXIDE
     Indication: Malignant melanoma
     Dosage: 1MG DAILY ORAL?
     Route: 048
     Dates: start: 202111, end: 202204
  3. ASPIRIN [Concomitant]
     Active Substance: ASPIRIN
  4. B COMPLEX VITAMIN [Concomitant]
  5. BD ULTRAFINE [Concomitant]
  6. CETIRIZINE [Concomitant]
     Active Substance: CETIRIZINE HYDROCHLORIDE
  7. COREG [Concomitant]
     Active Substance: CARVEDILOL
  8. DYAZIDE [Concomitant]
     Active Substance: HYDROCHLOROTHIAZIDE\TRIAMTERENE
  9. FISH OIL [Concomitant]
     Active Substance: FISH OIL
  10. GABAPENTIN [Concomitant]
     Active Substance: GABAPENTIN
  11. GLUCOSE BLOOD [Concomitant]
  12. KENALOG [Concomitant]
     Active Substance: TRIAMCINOLONE ACETONIDE
  13. LACETS [Concomitant]
  14. MISCELLANEOUS   Lantus SoloStar Subcutaneous [Concomitant]
  15. PROTONIX [Concomitant]
     Active Substance: PANTOPRAZOLE SODIUM
  16. VITAMIN C [Concomitant]
     Active Substance: ASCORBIC ACID
  17. ZOCOR [Concomitant]
     Active Substance: SIMVASTATIN
  18. VITAMINS [Concomitant]
     Active Substance: VITAMINS

REACTIONS (2)
  - Cerebral haemorrhage [None]
  - Neoplasm progression [None]
